FAERS Safety Report 5935131-8 (Version None)
Quarter: 2008Q4

REPORT INFORMATION
  Report Type: 
  Country: None (occurrence: None)
  Receive Date: 20081030
  Receipt Date: 20081022
  Transmission Date: 20090506
  Serious: Yes (Hospitalization)
  Sender: FDA-Public Use
  Company Number: AT-JNJFOC-20081005036

PATIENT
  Age: 27 Year
  Sex: Male
  Weight: 120.4 kg

DRUGS (12)
  1. HALDOL [Suspect]
     Route: 048
  2. HALDOL [Suspect]
     Indication: PSYCHOTIC DISORDER
     Route: 048
  3. ABILIFY [Suspect]
     Indication: DRUG USE FOR UNKNOWN INDICATION
     Route: 048
  4. ZYPREXA [Suspect]
     Route: 048
  5. ZYPREXA [Suspect]
     Route: 048
  6. ZYPREXA [Suspect]
     Route: 048
  7. ZYPREXA [Suspect]
     Indication: DRUG USE FOR UNKNOWN INDICATION
     Route: 048
  8. CO-DILATREND [Concomitant]
     Route: 048
  9. CO-DILATREND [Concomitant]
     Route: 048
  10. TEMESTA [Concomitant]
     Route: 048
  11. TEMESTA [Concomitant]
     Route: 048
  12. TEMESTA [Concomitant]
     Route: 048

REACTIONS (1)
  - RHABDOMYOLYSIS [None]
